FAERS Safety Report 5202742-7 (Version None)
Quarter: 2006Q4

REPORT INFORMATION
  Report Type: 
  Country: None (occurrence: None)
  Receive Date: 20061018
  Receipt Date: 20050909
  Transmission Date: 20070319
  Serious: Yes (Other)
  Sender: FDA-Public Use
  Company Number: PHEH2005US10386

PATIENT

DRUGS (2)
  1. ZOMETA [Suspect]
  2. VIOXX [Concomitant]

REACTIONS (1)
  - RENAL FAILURE [None]
